FAERS Safety Report 20617198 (Version 1)
Quarter: 2022Q1

REPORT INFORMATION
  Report Type: Spontaneous
  Country: US (occurrence: None)
  Receive Date: 20220321
  Receipt Date: 20220321
  Transmission Date: 20220423
  Serious: Yes (Hospitalization)
  Sender: FDA-Public Use
  Company Number: None

PATIENT
  Sex: Male

DRUGS (8)
  1. SODIUM CHLORIDE INHALATION SOLUTION [Suspect]
     Active Substance: SODIUM CHLORIDE
     Indication: Microbiology test abnormal
     Dosage: FREQUENCY : 3 TIMES A DAY;?
     Route: 055
     Dates: start: 20210807
  2. SODIUM CHLORIDE INHALATION SOLUTION [Suspect]
     Active Substance: SODIUM CHLORIDE
     Indication: Acute respiratory failure
  3. SODIUM CHLORIDE INHALATION SOLUTION [Suspect]
     Active Substance: SODIUM CHLORIDE
     Indication: Lung disorder
  4. SODIUM CHLORIDE INHALATION SOLUTION [Suspect]
     Active Substance: SODIUM CHLORIDE
     Indication: Respiration abnormal
  5. PULMOZYME [Suspect]
     Active Substance: DORNASE ALFA
     Indication: Microbiology test abnormal
     Dosage: FREQUENCY : DAILY;?
     Route: 055
     Dates: start: 20171025
  6. PULMOZYME [Suspect]
     Active Substance: DORNASE ALFA
     Indication: Acute respiratory failure
  7. PULMOZYME [Suspect]
     Active Substance: DORNASE ALFA
     Indication: Lung disorder
  8. PULMOZYME [Suspect]
     Active Substance: DORNASE ALFA
     Indication: Respiration abnormal

REACTIONS (1)
  - Hospitalisation [None]
